FAERS Safety Report 5243186-1 (Version None)
Quarter: 2007Q1

REPORT INFORMATION
  Report Type: 
  Country: None (occurrence: None)
  Receive Date: 20070221
  Receipt Date: 20070212
  Transmission Date: 20070707
  Serious: Yes (Other)
  Sender: FDA-Public Use
  Company Number: GB-PFIZER INC-2007012359

PATIENT
  Sex: Female

DRUGS (2)
  1. TOLTERODINE [Suspect]
  2. PAROXETINE HCL [Interacting]

REACTIONS (5)
  - DRUG INTERACTION [None]
  - DRUG WITHDRAWAL SYNDROME [None]
  - FEELING ABNORMAL [None]
  - SYNCOPE VASOVAGAL [None]
  - VERTIGO [None]
